FAERS Safety Report 14329710 (Version 2)
Quarter: 2018Q1

REPORT INFORMATION
  Report Type: Spontaneous
  Country: JP (occurrence: JP)
  Receive Date: 20171227
  Receipt Date: 20180207
  Transmission Date: 20180509
  Serious: Yes (Death, Other)
  Sender: FDA-Public Use
  Company Number: JP-SA-2017SA262400

PATIENT
  Age: 83 Year
  Sex: Female
  Weight: 36 kg

DRUGS (13)
  1. ELPLAT [Suspect]
     Active Substance: OXALIPLATIN
     Indication: GASTRIC CANCER
     Route: 041
     Dates: start: 20150929, end: 20150929
  2. NEXIUM [Concomitant]
     Active Substance: ESOMEPRAZOLE MAGNESIUM
     Route: 065
     Dates: start: 20150726, end: 20160302
  3. ELPLAT [Suspect]
     Active Substance: OXALIPLATIN
     Indication: GASTRIC CANCER
     Route: 041
     Dates: start: 20151118, end: 20151118
  4. DEXART [Concomitant]
     Active Substance: DEXAMETHASONE SODIUM PHOSPHATE
     Route: 065
     Dates: start: 20150728, end: 20151118
  5. RENIVACE [Concomitant]
     Active Substance: ENALAPRIL
     Route: 065
     Dates: start: 20150119, end: 20151202
  6. TS-1 [Concomitant]
     Active Substance: GIMERACIL\OTERACIL\TEGAFUR
     Route: 065
     Dates: start: 20150728
  7. ELPLAT [Suspect]
     Active Substance: OXALIPLATIN
     Indication: GASTRIC CANCER
     Route: 041
     Dates: start: 20151028, end: 20151028
  8. MAGMITT [Concomitant]
     Active Substance: MAGNESIUM OXIDE
     Route: 048
     Dates: start: 20150119, end: 20150302
  9. ELPLAT [Suspect]
     Active Substance: OXALIPLATIN
     Indication: GASTRIC CANCER
     Route: 041
     Dates: start: 20150728, end: 20150728
  10. ELPLAT [Suspect]
     Active Substance: OXALIPLATIN
     Indication: GASTRIC CANCER
     Route: 041
     Dates: start: 20150824, end: 20150824
  11. LASIX [Concomitant]
     Active Substance: FUROSEMIDE
     Route: 065
     Dates: start: 20150723, end: 20150917
  12. GRANISETRON HYDROCHLORIDE. [Concomitant]
     Active Substance: GRANISETRON HYDROCHLORIDE
     Route: 065
     Dates: start: 20150728, end: 20151118
  13. AZELNIDIPINE [Concomitant]
     Active Substance: AZELNIDIPINE
     Route: 065
     Dates: start: 20150119, end: 20150918

REACTIONS (2)
  - Platelet count decreased [Unknown]
  - Cardiac failure chronic [Recovering/Resolving]

NARRATIVE: CASE EVENT DATE: 20150801
